FAERS Safety Report 10005164 (Version 1)
Quarter: 2014Q1

REPORT INFORMATION
  Report Type: Spontaneous
  Country: PL (occurrence: PL)
  Receive Date: 20140312
  Receipt Date: 20140312
  Transmission Date: 20141002
  Serious: Yes (Other)
  Sender: FDA-Public Use
  Company Number: PHHY2014PL027646

PATIENT
  Age: 67 Year
  Sex: Male
  Weight: 80 kg

DRUGS (6)
  1. CISPLATIN [Suspect]
     Indication: BLADDER CANCER
     Dosage: 150 UNK, QD
     Route: 042
     Dates: start: 20130715, end: 20131118
  2. CISPLATIN [Suspect]
     Dosage: 102 UKN
     Route: 042
     Dates: start: 20140115, end: 20140115
  3. DOXORUBICIN [Suspect]
     Indication: BLADDER CANCER
     Dosage: 43 UNK
     Route: 042
     Dates: start: 20140115, end: 20140115
  4. GEMCITABINE [Suspect]
     Indication: BLADDER CANCER
     Dosage: 1950 UNK, QD
     Route: 042
     Dates: start: 20130715, end: 20131118
  5. METHOTREXATE [Concomitant]
  6. VINBLASTINE [Concomitant]

REACTIONS (2)
  - Hyperkalaemia [Not Recovered/Not Resolved]
  - Neutropenia [Not Recovered/Not Resolved]
